FAERS Safety Report 22162557 (Version 1)
Quarter: 2023Q1

REPORT INFORMATION
  Report Type: Report from Study
  Country: GB (occurrence: GB)
  Receive Date: 20230331
  Receipt Date: 20230331
  Transmission Date: 20230418
  Serious: Yes (Other)
  Sender: FDA-Public Use
  Company Number: GB-002147023-NVSC2022GB195952

PATIENT
  Age: 65 Year
  Sex: Female

DRUGS (2)
  1. FULVESTRANT [Suspect]
     Active Substance: FULVESTRANT
     Indication: Breast cancer
     Dosage: UNK,  PFS WITH SAFETYGLIDE
     Route: 065
     Dates: start: 202207
  2. KISQALI [Suspect]
     Active Substance: RIBOCICLIB
     Indication: Breast cancer
     Dosage: UNK (PATIENT IS CYCLE 2, DAY 15 OF KISQALI),
     Route: 048
     Dates: start: 202207

REACTIONS (9)
  - Neutropenia [Not Recovered/Not Resolved]
  - Type 2 diabetes mellitus [Not Recovered/Not Resolved]
  - Dysphagia [Unknown]
  - Hypertension [Unknown]
  - Neutrophil count decreased [Unknown]
  - Oropharyngeal pain [Unknown]
  - Odynophagia [Unknown]
  - Tonsillitis [Unknown]
  - Menstruation irregular [Unknown]

NARRATIVE: CASE EVENT DATE: 20221201
